FAERS Safety Report 21314386 (Version 1)
Quarter: 2022Q3

REPORT INFORMATION
  Report Type: Spontaneous
  Country: US (occurrence: None)
  Receive Date: 20220909
  Receipt Date: 20220909
  Transmission Date: 20221027
  Serious: Yes (Hospitalization)
  Sender: FDA-Public Use
  Company Number: None

PATIENT
  Sex: Female

DRUGS (10)
  1. GILENYA [Suspect]
     Active Substance: FINGOLIMOD HYDROCHLORIDE
     Indication: Multiple sclerosis
     Dosage: TAKE 1 CAPSULE  BY MOUTH ONCE  DAILY
     Route: 048
     Dates: start: 20210417
  2. GILENYA [Suspect]
     Active Substance: FINGOLIMOD HYDROCHLORIDE
     Dosage: FREQUENCY : DAILY;?
     Route: 048
  3. AMMONIUM LAC CRE 12% [Concomitant]
  4. ACETAMINOPHEN\HYDROCODONE [Concomitant]
     Active Substance: ACETAMINOPHEN\HYDROCODONE
  5. HYDROMORPHONE [Concomitant]
     Active Substance: HYDROMORPHONE
  6. ONDANSETRON [Concomitant]
     Active Substance: ONDANSETRON
  7. OXYBUTYNIN [Concomitant]
     Active Substance: OXYBUTYNIN
  8. PAROXETINE [Concomitant]
     Active Substance: PAROXETINE
  9. PREDNISONE [Concomitant]
     Active Substance: PREDNISONE
  10. TIZANIDINE [Concomitant]
     Active Substance: TIZANIDINE

REACTIONS (4)
  - Therapy interrupted [None]
  - Mobility decreased [None]
  - Fall [None]
  - Foot operation [None]
